FAERS Safety Report 7682817-3 (Version None)
Quarter: 2011Q3

REPORT INFORMATION
  Report Type: 
  Country: None (occurrence: None)
  Receive Date: 20110812
  Receipt Date: 20110812
  Transmission Date: 20111222
  Serious: No
  Sender: FDA-Public Use
  Company Number: None

PATIENT
  Age: 67 Year
  Sex: Male
  Weight: 115 kg

DRUGS (1)
  1. IOPAMIDOL [Suspect]
     Dosage: 100 ML ONCE IV
     Route: 042
     Dates: start: 20110316, end: 20110316

REACTIONS (9)
  - PALMAR ERYTHEMA [None]
  - LIP SWELLING [None]
  - UNEVALUABLE EVENT [None]
  - EYELID OEDEMA [None]
  - URTICARIA [None]
  - OEDEMA PERIPHERAL [None]
  - SWELLING FACE [None]
  - LOCAL SWELLING [None]
  - PRURITUS [None]
